FAERS Safety Report 12987841 (Version 3)
Quarter: 2017Q1

REPORT INFORMATION
  Report Type: Report from Study
  Country: CA (occurrence: CA)
  Receive Date: 20161130
  Receipt Date: 20170316
  Transmission Date: 20170428
  Serious: Yes (Hospitalization)
  Sender: FDA-Public Use
  Company Number: PHHY2013CA036390

PATIENT
  Sex: Male

DRUGS (2)
  1. TASIGNA [Suspect]
     Active Substance: NILOTINIB
     Indication: CHRONIC MYELOID LEUKAEMIA
     Dosage: 400 MG, BID
     Route: 048
     Dates: start: 201009
  2. TASIGNA [Suspect]
     Active Substance: NILOTINIB
     Dosage: 400 MG QAM AND 200 MG QPM
     Route: 048

REACTIONS (7)
  - Visual impairment [Unknown]
  - Vision blurred [Unknown]
  - Arthralgia [Unknown]
  - Nausea [Unknown]
  - Cardiac disorder [Unknown]
  - Decreased appetite [Unknown]
  - Weight decreased [Unknown]
